FAERS Safety Report 22524090 (Version 1)
Quarter: 2023Q2

REPORT INFORMATION
  Report Type: Spontaneous
  Country: US (occurrence: US)
  Receive Date: 20230606
  Receipt Date: 20230606
  Transmission Date: 20230722
  Serious: Yes (Congenital Anomaly, Other)
  Sender: FDA-Public Use
  Company Number: US-STRIDES ARCOLAB LIMITED-2023SP008911

PATIENT
  Sex: Female

DRUGS (5)
  1. AMPICILLIN TRIHYDRATE [Suspect]
     Active Substance: AMPICILLIN TRIHYDRATE
     Indication: Product used for unknown indication
     Dosage: UNK
     Route: 064
  2. AZITHROMYCIN [Suspect]
     Active Substance: AZITHROMYCIN
     Indication: Product used for unknown indication
     Dosage: UNK
     Route: 064
  3. BETAMETHASONE [Suspect]
     Active Substance: BETAMETHASONE
     Indication: Maternal therapy to enhance foetal lung maturity
     Dosage: UNK
     Route: 064
  4. COVID-19 CONVALESCENT PLASMA [Suspect]
     Active Substance: COVID-19 CONVALESCENT PLASMA
     Indication: Product used for unknown indication
     Dosage: UNK
     Route: 064
  5. MAGNESIUM SULFATE [Suspect]
     Active Substance: MAGNESIUM SULFATE
     Indication: Product used for unknown indication
     Dosage: UNK
     Route: 064

REACTIONS (6)
  - Patent ductus arteriosus [Recovered/Resolved]
  - Premature baby [Unknown]
  - Low birth weight baby [Unknown]
  - Intestinal ischaemia [Unknown]
  - Pneumoperitoneum [Unknown]
  - Foetal exposure during pregnancy [Unknown]
